FAERS Safety Report 24122665 (Version 1)
Quarter: 2024Q3

REPORT INFORMATION
  Report Type: Report from Study
  Country: US (occurrence: US)
  Receive Date: 20240723
  Receipt Date: 20240723
  Transmission Date: 20241017
  Serious: Yes (Other)
  Sender: MALLINCKRODT
  Company Number: US-MALLINCKRODT-MNK202404147

PATIENT
  Age: 56 Year
  Sex: Male

DRUGS (2)
  1. CORTICOTROPIN [Suspect]
     Active Substance: CORTICOTROPIN
     Indication: Multiple sclerosis
     Dosage: 80 UNITS
     Route: 030
     Dates: start: 20240619, end: 20240628
  2. MAVENCLAD [Concomitant]
     Active Substance: CLADRIBINE
     Dosage: UNKNOWN

REACTIONS (5)
  - Diabetes mellitus [Not Recovered/Not Resolved]
  - Feeling abnormal [Unknown]
  - Abdominal discomfort [Recovering/Resolving]
  - Nausea [Recovering/Resolving]
  - Diarrhoea [Recovering/Resolving]

NARRATIVE: CASE EVENT DATE: 20240101
